FAERS Safety Report 6901539-7 (Version None)
Quarter: 2010Q3

REPORT INFORMATION
  Report Type: 
  Country: None (occurrence: None)
  Receive Date: 20100803
  Receipt Date: 20100726
  Transmission Date: 20110219
  Serious: Yes (Other)
  Sender: FDA-Public Use
  Company Number: US-AMGEN-KDL427055

PATIENT
  Sex: Male

DRUGS (1)
  1. ENBREL [Suspect]
     Indication: RHEUMATOID ARTHRITIS
     Route: 058

REACTIONS (6)
  - CATARACT [None]
  - COUGH [None]
  - FEELING ABNORMAL [None]
  - HYPERSOMNIA [None]
  - MACULAR DEGENERATION [None]
  - WEIGHT DECREASED [None]
